FAERS Safety Report 10594717 (Version 3)
Quarter: 2014Q4

REPORT INFORMATION
  Report Type: Report from Study
  Country: AU (occurrence: AU)
  Receive Date: 20141120
  Receipt Date: 20141219
  Transmission Date: 20150529
  Serious: Yes (Other)
  Sender: FDA-Public Use
  Company Number: AU-ROCHE-1478241

PATIENT
  Sex: Male

DRUGS (1)
  1. ACTEMRA [Suspect]
     Active Substance: TOCILIZUMAB
     Indication: RHEUMATOID ARTHRITIS
     Dosage: ONGOING
     Route: 042
     Dates: start: 20140307

REACTIONS (5)
  - Fatigue [Recovering/Resolving]
  - Goitre [Unknown]
  - Sinusitis [Recovered/Resolved]
  - Fatigue [Unknown]
  - Dyspnoea [Recovering/Resolving]
